FAERS Safety Report 7705566-1 (Version None)
Quarter: 2011Q3

REPORT INFORMATION
  Report Type: 
  Country: None (occurrence: None)
  Receive Date: 20110823
  Receipt Date: 20110823
  Transmission Date: 20111222
  Serious: Yes (Life-Threatening)
  Sender: FDA-Public Use
  Company Number: None

PATIENT
  Age: 63 Year
  Sex: Male
  Weight: 109.1 kg

DRUGS (1)
  1. MELOXICAM [Suspect]
     Indication: PAIN
     Dosage: 15 MG PRN PO
     Route: 048
     Dates: start: 20110401, end: 20110608

REACTIONS (1)
  - STEVENS-JOHNSON SYNDROME [None]
